FAERS Safety Report 11468563 (Version 1)
Quarter: 2015Q3

REPORT INFORMATION
  Report Type: Spontaneous
  Country: US (occurrence: None)
  Receive Date: 20150904
  Receipt Date: 20150904
  Transmission Date: 20151125
  Serious: Yes (Life-Threatening, Hospitalization)
  Sender: FDA-Public Use
  Company Number: None

PATIENT
  Age: 51 Year
  Sex: Male
  Weight: 94.5 kg

DRUGS (1)
  1. ZIPRASIDONE. [Suspect]
     Active Substance: ZIPRASIDONE
     Indication: BIPOLAR I DISORDER
     Route: 048
     Dates: start: 20150612, end: 20150612

REACTIONS (5)
  - Hypotension [None]
  - Unresponsive to stimuli [None]
  - Lethargy [None]
  - Respiratory distress [None]
  - Oxygen saturation decreased [None]

NARRATIVE: CASE EVENT DATE: 20150612
